FAERS Safety Report 6252431-5 (Version None)
Quarter: 2009Q2

REPORT INFORMATION
  Report Type: 
  Country: None (occurrence: None)
  Receive Date: 20090629
  Receipt Date: 20090616
  Transmission Date: 20091009
  Serious: Yes (Hospitalization)
  Sender: FDA-Public Use
  Company Number: OMZ20090009

PATIENT
  Age: 64 Year
  Sex: Female
  Weight: 62.5964 kg

DRUGS (8)
  1. OMEPRAZOLE [Suspect]
     Indication: GASTROOESOPHAGEAL REFLUX DISEASE
     Dosage: 20 MG, TWICE DAILY, PER ORAL
     Route: 048
     Dates: start: 20090528, end: 20090601
  2. DYAZIDE [Concomitant]
  3. NORVASC [Concomitant]
  4. PRAVACHOL [Concomitant]
  5. TOPROL-XL [Concomitant]
  6. AMBIEN [Concomitant]
  7. FOSAMAX [Concomitant]
  8. TRAZODONE HCL [Concomitant]

REACTIONS (1)
  - ASTHMA [None]
